FAERS Safety Report 4771323-1 (Version None)
Quarter: 2005Q3

REPORT INFORMATION
  Report Type: 
  Country: None (occurrence: None)
  Receive Date: 20050914
  Receipt Date: 20050825
  Transmission Date: 20060218
  Serious: Yes (Hospitalization)
  Sender: FDA-Public Use
  Company Number: USA041183191

PATIENT
  Age: 74 Year
  Sex: Female
  Weight: 45 kg

DRUGS (16)
  1. FORTEO [Suspect]
     Indication: OSTEOPOROSIS
     Dosage: 20 UG/1 DAY
     Dates: start: 20041021
  2. EVISTA [Suspect]
     Indication: OSTEOPOROSIS
     Dosage: UNK
     Route: 065
     Dates: end: 20041001
  3. XANAX (ALPRAZOLAM DUM) [Concomitant]
  4. SINGULAIR [Concomitant]
  5. DILTIAZEM [Concomitant]
  6. ASPIRIN [Concomitant]
  7. LASIX [Concomitant]
  8. PREVASCID (LANSOPRAZOLE) [Concomitant]
  9. MYCELEX [Concomitant]
  10. RHINOCORT [Concomitant]
  11. TESSALON [Concomitant]
  12. DIFLUCAN [Concomitant]
  13. ACETAMINOPHEN [Concomitant]
  14. MULTIVITAMIN [Concomitant]
  15. CALCIUM CARBONATE [Concomitant]
  16. PREDNISONE [Concomitant]

REACTIONS (20)
  - ARTHRALGIA [None]
  - ASTHENIA [None]
  - BACK PAIN [None]
  - BODY HEIGHT DECREASED [None]
  - CARDIAC FAILURE CONGESTIVE [None]
  - CHRONIC OBSTRUCTIVE PULMONARY DISEASE [None]
  - DEPRESSION [None]
  - FATIGUE [None]
  - GAIT DISTURBANCE [None]
  - HYPOAESTHESIA [None]
  - INCORRECT DOSE ADMINISTERED [None]
  - INJECTION SITE HAEMORRHAGE [None]
  - LOSS OF CONTROL OF LEGS [None]
  - MALAISE [None]
  - MUSCLE SPASMS [None]
  - NECK PAIN [None]
  - PHARMACEUTICAL PRODUCT COMPLAINT [None]
  - SCAB [None]
  - SPINAL COMPRESSION FRACTURE [None]
  - UPPER RESPIRATORY TRACT INFECTION [None]
